FAERS Safety Report 5780603-2 (Version None)
Quarter: 2008Q2

REPORT INFORMATION
  Report Type: 
  Country: None (occurrence: None)
  Receive Date: 20080620
  Receipt Date: 20080613
  Transmission Date: 20081010
  Serious: No
  Sender: FDA-Public Use
  Company Number: US-ELI_LILLY_AND_COMPANY-US200804006265

PATIENT
  Sex: Female

DRUGS (7)
  1. HUMALOG [Suspect]
     Dosage: UNK, DAILY (1/D)
  2. ADVAIR DISKUS 100/50 [Concomitant]
     Dosage: 1 UNK, 2/D
     Route: 055
  3. ALBUTEROL SULFATE AUTOHALER [Concomitant]
     Dosage: 2 UNK, AS NEEDED
     Route: 055
  4. AMARYL [Concomitant]
     Dosage: 4 MG, 2/D
     Route: 048
  5. COLCHICINE [Concomitant]
     Dosage: 0.6 MG, 4/D
     Route: 048
  6. LEVEMIR [Concomitant]
     Dosage: 40 U, DAILY (1/D)
     Route: 048
  7. LIPITOR [Concomitant]
     Dosage: 20 MG, EACH EVENING
     Route: 048

REACTIONS (1)
  - PAIN [None]
